FAERS Safety Report 7270841-4 (Version None)
Quarter: 2011Q1

REPORT INFORMATION
  Report Type: 
  Country: None (occurrence: None)
  Receive Date: 20110202
  Receipt Date: 20110122
  Transmission Date: 20110831
  Serious: Yes (Other)
  Sender: FDA-Public Use
  Company Number: JP-CELGENEUS-087-21880-10112963

PATIENT
  Age: 68 Year
  Sex: Female
  Weight: 34.5 kg

DRUGS (20)
  1. NU-LOTAN [Concomitant]
     Indication: HYPERTENSION
     Route: 048
     Dates: start: 20100908, end: 20101117
  2. METHYCOBAL [Concomitant]
     Indication: MULTIPLE MYELOMA
     Route: 048
     Dates: start: 20100908, end: 20101117
  3. PREDONINE [Concomitant]
     Route: 041
     Dates: start: 20101118, end: 20101118
  4. TAKEPRON [Concomitant]
     Indication: PROPHYLAXIS
     Route: 048
     Dates: start: 20100908, end: 20101117
  5. LENDORMIN D [Concomitant]
     Indication: MULTIPLE MYELOMA
     Route: 048
     Dates: start: 20100916, end: 20101117
  6. MUCODYNE [Concomitant]
     Indication: PROPHYLAXIS
     Route: 048
     Dates: start: 20100917, end: 20100923
  7. TAKEPRON [Concomitant]
     Indication: PANCREATITIS ACUTE
  8. BEZATOL SR [Concomitant]
     Route: 048
     Dates: start: 20100908, end: 20101117
  9. REVLIMID [Suspect]
     Indication: MULTIPLE MYELOMA
     Route: 048
     Dates: start: 20100908, end: 20100916
  10. REVLIMID [Suspect]
     Route: 048
     Dates: start: 20101021, end: 20101027
  11. REVLIMID [Suspect]
     Route: 048
     Dates: start: 20101007, end: 20101015
  12. REVLIMID [Suspect]
     Route: 048
     Dates: start: 20101104, end: 20101117
  13. VFEND [Concomitant]
     Indication: PROPHYLAXIS
     Route: 048
     Dates: start: 20100908, end: 20101117
  14. LASIX [Concomitant]
     Indication: MULTIPLE MYELOMA
     Route: 048
     Dates: start: 20100908, end: 20101117
  15. FOLIAMIN [Concomitant]
     Indication: MULTIPLE MYELOMA
     Route: 048
     Dates: start: 20100908, end: 20101117
  16. ZOMETA [Concomitant]
     Indication: MULTIPLE MYELOMA
     Route: 041
     Dates: start: 20101007, end: 20101104
  17. PREDONINE [Concomitant]
     Indication: MULTIPLE MYELOMA
     Route: 048
     Dates: start: 20100908, end: 20101117
  18. VALTREX [Concomitant]
     Indication: MULTIPLE MYELOMA
     Route: 048
     Dates: start: 20100908, end: 20101117
  19. PROGRAF [Concomitant]
     Indication: MULTIPLE MYELOMA
     Route: 048
     Dates: start: 20100908, end: 20101103
  20. NOVORAPID [Concomitant]
     Indication: DIABETES MELLITUS
     Dosage: 2 UNITS
     Route: 058
     Dates: start: 20100916, end: 20101117

REACTIONS (5)
  - ENTEROCOLITIS [None]
  - HERPES ZOSTER [None]
  - DIARRHOEA [None]
  - PANCREATITIS ACUTE [None]
  - PNEUMONIA [None]
